FAERS Safety Report 13320816 (Version 1)
Quarter: 2017Q1

REPORT INFORMATION
  Report Type: Spontaneous
  Country: IT (occurrence: IT)
  Receive Date: 20170309
  Receipt Date: 20170309
  Transmission Date: 20170428
  Serious: Yes (Other)
  Sender: FDA-Public Use
  Company Number: IT-ALEXION PHARMACEUTICALS INC.-A201702231

PATIENT
  Age: 57 Year
  Sex: Female

DRUGS (10)
  1. SOLIRIS [Suspect]
     Active Substance: ECULIZUMAB
     Indication: HAEMOLYTIC URAEMIC SYNDROME
     Dosage: 900 MG, QW
     Route: 042
     Dates: start: 20151028
  2. METRONIDAZOLE. [Concomitant]
     Active Substance: METRONIDAZOLE
     Indication: INTESTINAL PERFORATION
     Route: 065
  3. FOLFOX-4 [Concomitant]
     Active Substance: FLUOROURACIL\LEUCOVORIN CALCIUM\OXALIPLATIN
     Indication: ADENOCARCINOMA OF COLON
     Dosage: 400 MG/M2, BOLUS OVER TWO HOURS
     Route: 042
     Dates: start: 20150812
  4. SOLIRIS [Suspect]
     Active Substance: ECULIZUMAB
     Dosage: 1200 MG, Q2W (EVERY 15 DAYS)
     Route: 042
     Dates: start: 20151125, end: 20160217
  5. FOLFOX-4 [Concomitant]
     Active Substance: FLUOROURACIL\LEUCOVORIN CALCIUM\OXALIPLATIN
     Dosage: 600 MG/M2, OVER 22 HOURS ON DAYS 1-2
     Route: 042
  6. FOLFOX-4 [Concomitant]
     Active Substance: FLUOROURACIL\LEUCOVORIN CALCIUM\OXALIPLATIN
     Dosage: 200 MG/M2,FOR FOLINIC ACID ON DAY 1-2
     Route: 042
  7. DOPAMINE [Concomitant]
     Active Substance: DOPAMINE\DOPAMINE HYDROCHLORIDE
     Indication: PRODUCT USED FOR UNKNOWN INDICATION
     Route: 065
  8. IRINOTECAN [Concomitant]
     Active Substance: IRINOTECAN
     Indication: ADENOCARCINOMA OF COLON
     Dosage: 180 MG/M2, ON DAY 1
     Route: 065
  9. FOLFOX-4 [Concomitant]
     Active Substance: FLUOROURACIL\LEUCOVORIN CALCIUM\OXALIPLATIN
     Dosage: OXALIPLATIN 85 MG/M2, ON DAY 1
  10. CETUXIMAB. [Concomitant]
     Active Substance: CETUXIMAB
     Indication: ADENOCARCINOMA OF COLON
     Dosage: 500 MG/M2, Q2W
     Route: 042
     Dates: start: 20150909

REACTIONS (3)
  - Condition aggravated [Unknown]
  - Metastases to liver [Unknown]
  - Neoplasm progression [Unknown]
